FAERS Safety Report 6570426-9 (Version None)
Quarter: 2010Q1

REPORT INFORMATION
  Report Type: 
  Country: None (occurrence: None)
  Receive Date: 20100204
  Receipt Date: 20090608
  Transmission Date: 20100710
  Serious: Yes (Life-Threatening, Other)
  Sender: FDA-Public Use
  Company Number: A0777802A

PATIENT
  Age: 65 Year
  Sex: Male
  Weight: 109.1 kg

DRUGS (7)
  1. ARIXTRA [Suspect]
     Dosage: 2.5MG PER DAY
     Route: 058
  2. HEPARIN [Concomitant]
  3. PERCOCET [Concomitant]
     Indication: PAIN
     Route: 048
  4. CELEBREX [Concomitant]
     Route: 048
  5. ULTRAM [Concomitant]
     Indication: PAIN
     Route: 048
  6. AVALIDE [Concomitant]
     Indication: HYPERTENSION
     Route: 048
  7. ZETIA [Concomitant]
     Route: 048

REACTIONS (2)
  - DYSPNOEA [None]
  - PULMONARY EMBOLISM [None]
